FAERS Safety Report 7215082-1 (Version None)
Quarter: 2011Q1

REPORT INFORMATION
  Report Type: 
  Country: None (occurrence: None)
  Receive Date: 20110107
  Receipt Date: 20101104
  Transmission Date: 20110831
  Serious: No
  Sender: FDA-Public Use
  Company Number: A0876113A

PATIENT
  Age: 58 Year
  Sex: Male

DRUGS (18)
  1. VITAMIN D3 [Concomitant]
  2. ALLOPURINOL [Concomitant]
  3. LEVOTHYROXINE [Concomitant]
  4. POTASSIUM [Concomitant]
  5. PANTOPRAZOLE [Concomitant]
  6. PLAVIX [Concomitant]
  7. LOVAZA [Suspect]
     Dosage: 4G PER DAY
     Route: 048
     Dates: start: 20100201, end: 20100814
  8. CO Q 10 [Concomitant]
  9. BUSPIRONE [Concomitant]
  10. DIPHENOXYLATE HCL + ATROPINE SULFATE [Concomitant]
  11. LISINOPRIL [Concomitant]
  12. CHLORTHALIDONE [Concomitant]
  13. ZOLPIDEM [Concomitant]
  14. MULTI-VITAMIN [Concomitant]
  15. CALCIUM [Concomitant]
  16. ASPIRIN [Concomitant]
  17. GEMFIBROZIL [Concomitant]
  18. METOPROLOL [Concomitant]

REACTIONS (9)
  - THERAPEUTIC RESPONSE UNEXPECTED [None]
  - DIARRHOEA [None]
  - ABDOMINAL DISCOMFORT [None]
  - ERUCTATION [None]
  - INSOMNIA [None]
  - NAUSEA [None]
  - GASTROOESOPHAGEAL REFLUX DISEASE [None]
  - VOMITING [None]
  - PRODUCT QUALITY ISSUE [None]
